FAERS Safety Report 11387798 (Version 2)
Quarter: 2015Q3

REPORT INFORMATION
  Report Type: Spontaneous
  Country: US (occurrence: US)
  Receive Date: 20150817
  Receipt Date: 20150817
  Transmission Date: 20151125
  Serious: Yes (Hospitalization)
  Sender: FDA-Public Use
  Company Number: US-SA-2015SA121127

PATIENT
  Age: 37 Year
  Sex: Female

DRUGS (2)
  1. TOUJEO [Suspect]
     Active Substance: INSULIN GLARGINE
     Dosage: DOSE: 90 (UNITS UNSPECIFIED)
     Route: 058
     Dates: start: 20150715, end: 20150730
  2. SOLOSTAR [Concomitant]
     Active Substance: DEVICE
     Dates: start: 20150715, end: 20150730

REACTIONS (1)
  - Palpitations [Recovered/Resolved]

NARRATIVE: CASE EVENT DATE: 2015
